FAERS Safety Report 7483417-0 (Version None)
Quarter: 2011Q2

REPORT INFORMATION
  Report Type: 
  Country: None (occurrence: None)
  Receive Date: 20110512
  Receipt Date: 20110512
  Transmission Date: 20111010
  Serious: Yes (Hospitalization)
  Sender: FDA-Public Use
  Company Number: None

PATIENT
  Age: 49 Year
  Sex: Male
  Weight: 106.5953 kg

DRUGS (2)
  1. SEROQUEL [Suspect]
     Indication: PSYCHOTIC DISORDER
     Dosage: 25 MG 1 A DAY ORAL
     Route: 048
     Dates: start: 20041111, end: 20041201
  2. SEROQUEL XR [Suspect]
     Dosage: 150 MG 1 A DAY ORAL
     Route: 048
     Dates: start: 20091001, end: 20091001

REACTIONS (4)
  - DISORIENTATION [None]
  - URINARY INCONTINENCE [None]
  - DYSKINESIA [None]
  - UNEVALUABLE EVENT [None]
